FAERS Safety Report 15016309 (Version 4)
Quarter: 2018Q3

REPORT INFORMATION
  Report Type: Spontaneous
  Country: IT (occurrence: IT)
  Receive Date: 20180615
  Receipt Date: 20180709
  Transmission Date: 20181010
  Serious: Yes (Other)
  Sender: FDA-Public Use
  Company Number: IT-LEO PHARMA-309448

PATIENT
  Age: 69 Year
  Sex: Female

DRUGS (1)
  1. PICATO [Suspect]
     Active Substance: INGENOL MEBUTATE
     Indication: ACTINIC KERATOSIS

REACTIONS (3)
  - Squamous cell carcinoma of skin [Unknown]
  - Application site erythema [Unknown]
  - Application site pain [Unknown]
